FAERS Safety Report 10979343 (Version 2)
Quarter: 2015Q3

REPORT INFORMATION
  Report Type: Spontaneous
  Country: US (occurrence: US)
  Receive Date: 20150402
  Receipt Date: 20150730
  Transmission Date: 20151125
  Serious: Yes (Hospitalization, Other)
  Sender: FDA-Public Use
  Company Number: US-BAYER-2015-083984

PATIENT
  Age: 58 Year
  Sex: Female
  Weight: 77 kg

DRUGS (13)
  1. TREPROSTINIL [Suspect]
     Active Substance: TREPROSTINIL
     Indication: PULMONARY HYPERTENSION
     Dosage: 0.75 MG, TID
     Route: 048
  2. REMODULIN [Suspect]
     Active Substance: TREPROSTINIL
     Indication: PULMONARY HYPERTENSION
     Dosage: 0.011 ?G/KG, UNK
     Route: 058
     Dates: start: 20040503
  3. TREPROSTINIL [Suspect]
     Active Substance: TREPROSTINIL
     Indication: PULMONARY HYPERTENSION
     Dosage: 1.125 MG, TID
     Route: 048
     Dates: start: 20150216
  4. PLAVIX [Concomitant]
     Active Substance: CLOPIDOGREL BISULFATE
  5. TREPROSTINIL [Suspect]
     Active Substance: TREPROSTINIL
     Indication: PULMONARY HYPERTENSION
     Dosage: 0.75 MG, BID
     Route: 048
     Dates: start: 20141010
  6. TREPROSTINIL [Suspect]
     Active Substance: TREPROSTINIL
     Indication: PULMONARY HYPERTENSION
     Dosage: 1 MG, 3 TIMES DAILY
     Route: 048
     Dates: start: 20150301
  7. ASPIRIN. [Concomitant]
     Active Substance: ASPIRIN
     Route: 048
  8. ALEVE [Suspect]
     Active Substance: NAPROXEN SODIUM
     Indication: HEADACHE
     Route: 048
  9. TREPROSTINIL [Suspect]
     Active Substance: TREPROSTINIL
     Indication: PULMONARY HYPERTENSION
     Dosage: 0.125 MG, BID
     Route: 048
  10. TREPROSTINIL [Suspect]
     Active Substance: TREPROSTINIL
     Indication: PULMONARY HYPERTENSION
     Dosage: 1 MG, Q8HR
     Route: 048
     Dates: start: 20150321
  11. TREPROSTINIL [Suspect]
     Active Substance: TREPROSTINIL
     Indication: PULMONARY HYPERTENSION
     Dosage: 0.5 MG, TID
     Route: 048
  12. TREPROSTINIL [Suspect]
     Active Substance: TREPROSTINIL
     Indication: PULMONARY HYPERTENSION
     Dosage: 0.375 MG, Q12 HOUR
     Route: 048
     Dates: start: 20141007
  13. REVATIO [Concomitant]
     Active Substance: SILDENAFIL CITRATE

REACTIONS (15)
  - Fall [Recovered/Resolved]
  - Abdominal pain lower [Unknown]
  - Palpitations [Unknown]
  - Diarrhoea [Unknown]
  - Heart rate increased [Unknown]
  - Back pain [Unknown]
  - Pain in jaw [Unknown]
  - Slow speech [Unknown]
  - Back injury [Unknown]
  - Pain in extremity [Unknown]
  - Headache [Unknown]
  - Diverticulitis [Not Recovered/Not Resolved]
  - Adverse drug reaction [Unknown]
  - Drug dose omission [Unknown]
  - Dysphonia [Unknown]

NARRATIVE: CASE EVENT DATE: 2015
